FAERS Safety Report 7917655-7 (Version None)
Quarter: 2011Q4

REPORT INFORMATION
  Report Type: 
  Country: None (occurrence: None)
  Receive Date: 20111116
  Receipt Date: 20110427
  Transmission Date: 20120403
  Serious: Yes (Hospitalization, Other)
  Sender: FDA-Public Use
  Company Number: US-UCBSA-028662

PATIENT
  Age: 51 Year
  Sex: Male
  Weight: 78 kg

DRUGS (15)
  1. LOPERAMIDE HCL [Concomitant]
     Indication: CROHN'S DISEASE
  2. OXYCODONE HCL [Concomitant]
     Indication: PAIN
     Dosage: 1-2 EVERY 4 HOURS AS NEEDED
     Route: 048
     Dates: start: 20100501
  3. MERCAPTOPURINE [Concomitant]
     Indication: CROHN'S DISEASE
  4. INFLIXIMAB [Concomitant]
     Indication: CROHN'S DISEASE
  5. CIMZIA [Suspect]
     Indication: CROHN'S DISEASE
     Route: 058
     Dates: start: 20090905
  6. CIMZIA [Suspect]
     Dosage: 02/AMR/2011, THE PATIENT WAS TAKING CIMZIA AT THAT TIME
     Route: 058
  7. CIMZIA [Suspect]
     Route: 058
     Dates: start: 20100413
  8. MESALAMINE [Concomitant]
     Indication: CROHN'S DISEASE
     Dates: start: 20091201
  9. ZOLOFT [Concomitant]
     Indication: DEPRESSION
     Route: 048
     Dates: start: 20040101
  10. CIMZIA [Suspect]
     Route: 058
     Dates: start: 20100618
  11. PERCOCET [Concomitant]
     Indication: PAIN
     Dosage: 5MG/325 MG, 1 EVERY 6 HOURS
     Route: 048
     Dates: start: 20030101
  12. CIMZIA [Suspect]
     Route: 058
     Dates: start: 20091210
  13. CIMZIA [Suspect]
     Route: 058
     Dates: start: 20100110
  14. CIMZIA [Suspect]
     Route: 058
     Dates: start: 20100514
  15. CIMZIA [Suspect]
     Route: 058
     Dates: start: 20100723

REACTIONS (2)
  - COLITIS [None]
  - ABSCESS [None]
